FAERS Safety Report 7149107-9 (Version None)
Quarter: 2010Q4

REPORT INFORMATION
  Report Type: 
  Country: None (occurrence: None)
  Receive Date: 20101209
  Receipt Date: 20101204
  Transmission Date: 20110411
  Serious: Yes (Other)
  Sender: FDA-Public Use
  Company Number: US-JNJCH-2010027748

PATIENT
  Sex: Female

DRUGS (1)
  1. EXTRA STRENGTH ROLAIDS SOFTCHEWS WILD CHERRY [Suspect]
     Indication: PRODUCT USED FOR UNKNOWN INDICATION
     Dosage: TEXT:THREE CHEWABLES
     Route: 048
     Dates: start: 20101127, end: 20101127

REACTIONS (2)
  - DIZZINESS [None]
  - LOSS OF CONSCIOUSNESS [None]
